FAERS Safety Report 16489989 (Version 1)
Quarter: 2019Q2

REPORT INFORMATION
  Report Type: Spontaneous
  Country: US (occurrence: US)
  Receive Date: 20190628
  Receipt Date: 20190628
  Transmission Date: 20190711
  Serious: No
  Sender: FDA-Public Use
  Company Number: US-ACCORD-073174

PATIENT
  Age: 40 Year
  Sex: Female

DRUGS (1)
  1. CLONAZEPAM ACCORD [Suspect]
     Active Substance: CLONAZEPAM
     Indication: PRODUCT USED FOR UNKNOWN INDICATION

REACTIONS (7)
  - Dyspnoea [Unknown]
  - Somnolence [Unknown]
  - Confusional state [Unknown]
  - Panic attack [Unknown]
  - Drug ineffective [Unknown]
  - Fatigue [Unknown]
  - Palpitations [Unknown]
